FAERS Safety Report 4784997-6 (Version None)
Quarter: 2005Q3

REPORT INFORMATION
  Report Type: 
  Country: None (occurrence: None)
  Receive Date: 20050928
  Receipt Date: 20050912
  Transmission Date: 20060218
  Serious: Yes (Other)
  Sender: FDA-Public Use
  Company Number: USA0509107959

PATIENT
  Age: 71 Year
  Sex: Male

DRUGS (16)
  1. FORTEO [Suspect]
     Indication: OSTEOPOROSIS
     Dates: start: 20030101
  2. ADVAIR DISKUS 100/50 [Concomitant]
  3. ALUPENT (ORICIPRENALINE SULFATE) [Concomitant]
  4. PROPECIA [Concomitant]
  5. SULINDAC [Concomitant]
  6. PRILOSEC [Concomitant]
  7. CLARITIN [Concomitant]
  8. SINGULAIR [Concomitant]
  9. WELLBUTRIN   /00700501/(BUPROPION) [Concomitant]
  10. MULTI-VITAMINS [Concomitant]
  11. MINERALS NOS [Concomitant]
  12. FOLIC ACID [Concomitant]
  13. CALCIUM GLUCONATE [Concomitant]
  14. VITAMIN D [Concomitant]
  15. LOMOTIL   /CAN/(METRONIDAZOLE) [Concomitant]
  16. RETIN A (TRETINOIN) [Concomitant]

REACTIONS (4)
  - HAEMOPTYSIS [None]
  - NECROSIS [None]
  - PHARMACEUTICAL PRODUCT COMPLAINT [None]
  - PULMONARY GRANULOMA [None]
